FAERS Safety Report 6162419-0 (Version None)
Quarter: 2009Q2

REPORT INFORMATION
  Report Type: 
  Country: None (occurrence: None)
  Receive Date: 20090421
  Receipt Date: 20090417
  Transmission Date: 20091009
  Serious: Yes (Death, Life-Threatening)
  Sender: FDA-Public Use
  Company Number: JP-BAYER-200911182BYL

PATIENT
  Age: 83 Year
  Sex: Male
  Weight: 59 kg

DRUGS (18)
  1. CIPROXAN-I.V. [Suspect]
     Indication: PNEUMONIA
     Dosage: TOTAL DAILY DOSE: 600 MG  UNIT DOSE: 300 MG
     Route: 041
     Dates: start: 20090110, end: 20090119
  2. TEICOPLANIN [Suspect]
     Indication: PNEUMONIA
     Dosage: TOTAL DAILY DOSE: 400 MG
     Route: 041
     Dates: start: 20090117, end: 20090126
  3. TAZOBACTAM:PIPERACILLIN [Suspect]
     Indication: PNEUMONIA
     Dosage: TOTAL DAILY DOSE: 13.5 G
     Route: 042
     Dates: start: 20090121, end: 20090124
  4. SEISHOKU [Concomitant]
     Route: 041
     Dates: start: 20090110, end: 20090119
  5. CEFEPIME DIHYDROCHLORIDE [Concomitant]
     Dosage: TOTAL DAILY DOSE: 4 G
     Route: 065
     Dates: start: 20090124, end: 20090126
  6. AMIKACIN SULFATE [Concomitant]
     Dosage: TOTAL DAILY DOSE: 200 MG
     Route: 065
     Dates: start: 20090126, end: 20090201
  7. MEROPENEM TRIHYDRATE [Concomitant]
     Dosage: TOTAL DAILY DOSE: 2 G
     Route: 041
     Dates: start: 20090126, end: 20090211
  8. SULFAMETHOXAZOLE AND TRIMETHOPRIM [Concomitant]
     Dosage: TOTAL DAILY DOSE: 1 G
     Route: 041
     Dates: start: 20090127, end: 20090206
  9. ISONIAZID [Concomitant]
     Dosage: TOTAL DAILY DOSE: 100 MG
     Route: 065
     Dates: start: 20090127, end: 20090206
  10. CLINDAMYCIN HCL [Concomitant]
     Dosage: TOTAL DAILY DOSE: 1200 MG
     Route: 065
     Dates: start: 20090201, end: 20090211
  11. METHYLPREDNISOLONE 4MG TAB [Concomitant]
     Dosage: TOTAL DAILY DOSE: 500 MG
     Route: 065
     Dates: start: 20090111, end: 20090113
  12. METHYLPREDNISOLONE 4MG TAB [Concomitant]
     Dosage: TOTAL DAILY DOSE: 250 MG
     Route: 065
     Dates: start: 20090114, end: 20090116
  13. PREDNISOLONE [Concomitant]
     Dosage: TOTAL DAILY DOSE: 20 MG
     Route: 065
     Dates: start: 20090207, end: 20090216
  14. PREDNISOLONE [Concomitant]
     Dosage: TOTAL DAILY DOSE: 30 MG
     Route: 065
     Dates: start: 20090131, end: 20090206
  15. PREDNISOLONE [Concomitant]
     Dosage: TOTAL DAILY DOSE: 40 MG
     Route: 065
     Dates: start: 20090117, end: 20090130
  16. SIVELESTAT SODIUM HYDRATE [Concomitant]
     Dosage: TOTAL DAILY DOSE: 300 MG
     Route: 042
     Dates: start: 20090111, end: 20090117
  17. FAMOTIDINE [Concomitant]
     Dosage: TOTAL DAILY DOSE: 20 MG
     Route: 065
     Dates: start: 20090110, end: 20090131
  18. HEPARIN [Concomitant]
     Indication: DISSEMINATED INTRAVASCULAR COAGULATION
     Route: 065
     Dates: start: 20090119

REACTIONS (2)
  - HEPATIC FUNCTION ABNORMAL [None]
  - PLATELET COUNT DECREASED [None]
